FAERS Safety Report 6417951-9 (Version None)
Quarter: 2009Q4

REPORT INFORMATION
  Report Type: 
  Country: None (occurrence: None)
  Receive Date: 20091009
  Receipt Date: 20090924
  Transmission Date: 20100525
  Serious: Yes (Other)
  Sender: FDA-Public Use
  Company Number: 20090924CINRY1152

PATIENT
  Age: 68 Year
  Sex: Female
  Weight: 64.4108 kg

DRUGS (12)
  1. CINRYZE [Suspect]
     Indication: HEREDITARY ANGIOEDEMA
     Dosage: (1000 UNIT, 2 IN 1 WK), INTRAVENOUS
     Route: 042
     Dates: start: 20060406
  2. CINRYZE [Suspect]
     Indication: PROPHYLAXIS
     Dosage: (1000 UNIT, 2 IN 1 WK), INTRAVENOUS
     Route: 042
     Dates: start: 20060406
  3. AMITRIPTYLINE      (AMITRIPTYLINE) (TABLETS) [Concomitant]
  4. METOPROLOL  (METOPROLOL) [Concomitant]
  5. MIRAPEX [Concomitant]
  6. B12 (CYANOCOBALAMIN -TANNIN COMPLEX) [Concomitant]
  7. KLONOPIN [Concomitant]
  8. LEXAPRO [Concomitant]
  9. PRILOSEC [Concomitant]
  10. BACTRIM DS [Concomitant]
  11. ZELNORM [Concomitant]
  12. OXANDRIN [Concomitant]

REACTIONS (5)
  - ANGIOEDEMA [None]
  - BACK PAIN [None]
  - CAROTID ARTERIOSCLEROSIS [None]
  - CEREBELLAR ATROPHY [None]
  - TRANSIENT ISCHAEMIC ATTACK [None]
